FAERS Safety Report 24554628 (Version 1)
Quarter: 2024Q4

REPORT INFORMATION
  Report Type: Report from Study
  Country: US (occurrence: US)
  Receive Date: 20241028
  Receipt Date: 20241028
  Transmission Date: 20250115
  Serious: Yes (Other)
  Sender: ABBVIE
  Company Number: US-ABBVIE-5977598

PATIENT
  Age: 81 Year
  Sex: Male

DRUGS (1)
  1. SKYRIZI [Suspect]
     Active Substance: RISANKIZUMAB-RZAA
     Indication: Crohn^s disease
     Route: 058
     Dates: start: 20230802

REACTIONS (3)
  - Neoplasm malignant [Recovering/Resolving]
  - Crohn^s disease [Recovering/Resolving]
  - Oesophageal achalasia [Unknown]

NARRATIVE: CASE EVENT DATE: 20241022
